FAERS Safety Report 23906969 (Version 1)
Quarter: 2024Q2

REPORT INFORMATION
  Report Type: Spontaneous
  Country: FR (occurrence: FR)
  Receive Date: 20240528
  Receipt Date: 20240528
  Transmission Date: 20240716
  Serious: Yes (Hospitalization)
  Sender: FDA-Public Use
  Company Number: None

PATIENT
  Sex: Male
  Weight: 2.43 kg

DRUGS (3)
  1. KALETRA [Suspect]
     Active Substance: LOPINAVIR\RITONAVIR
     Indication: Prophylaxis against HIV infection
     Route: 048
     Dates: start: 20240203, end: 20240219
  2. EPIVIR [Suspect]
     Active Substance: LAMIVUDINE
     Indication: Prophylaxis against HIV infection
     Route: 048
     Dates: start: 20240203, end: 20240219
  3. RETROVIR [Suspect]
     Active Substance: ZIDOVUDINE
     Indication: Prophylaxis against HIV infection
     Route: 048
     Dates: start: 20240203, end: 20240219

REACTIONS (4)
  - Hyponatraemia [Not Recovered/Not Resolved]
  - Blood aldosterone increased [Not Recovered/Not Resolved]
  - Blood corticotrophin increased [Not Recovered/Not Resolved]
  - Hyperkalaemia [Not Recovered/Not Resolved]

NARRATIVE: CASE EVENT DATE: 20240213
